FAERS Safety Report 5161326-X (Version None)
Quarter: 2006Q4

REPORT INFORMATION
  Report Type: 
  Country: None (occurrence: None)
  Receive Date: 20061121
  Receipt Date: 20061107
  Transmission Date: 20070319
  Serious: Yes (Hospitalization)
  Sender: FDA-Public Use
  Company Number: 2006JP004626

PATIENT
  Sex: Male
  Weight: 33 kg

DRUGS (4)
  1. PROGRAF [Suspect]
     Dosage: 5 MG,
  2. CALCIFEROL (ERGOCALCIFEROL) PER ORAL NOS [Concomitant]
  3. PENTA-VITE ADULT SYRUP [Concomitant]
  4. URSODEOXYCHOLIC ACID (URSODEOXYCHOLIC ACID) PER ORAL NOS [Concomitant]

REACTIONS (4)
  - CONTUSION [None]
  - EPISTAXIS [None]
  - NEUTROPENIA [None]
  - THROMBOCYTOPENIA [None]
